FAERS Safety Report 22083791 (Version 1)
Quarter: 2023Q1

REPORT INFORMATION
  Report Type: Spontaneous
  Country: CH (occurrence: CH)
  Receive Date: 20230310
  Receipt Date: 20230310
  Transmission Date: 20230418
  Serious: Yes (Life-Threatening, Hospitalization, Other)
  Sender: FDA-Public Use
  Company Number: None

PATIENT
  Age: 31 Year
  Sex: Female
  Weight: 55 kg

DRUGS (9)
  1. IBUPROFEN [Suspect]
     Active Substance: IBUPROFEN
     Indication: Procedural pain
     Dosage: 400 MILLIGRAM (8 HOURS)
     Route: 048
     Dates: start: 20230203, end: 20230209
  2. NOVALGIN (METAMIZOLE SODIUM) [Suspect]
     Active Substance: METAMIZOLE SODIUM
     Indication: Procedural pain
     Dosage: 500 MILLIGRAM (6 HOURS)
     Route: 048
     Dates: start: 20230204, end: 20230209
  3. XARELTO [Suspect]
     Active Substance: RIVAROXABAN
     Indication: Thrombosis prophylaxis
     Dosage: 10 MILLIGRAM, QD (TREATMENT SUSPENDED 9.2.2023 RESUMED 13.2.2023)
     Route: 048
     Dates: start: 20230205, end: 20230209
  4. XARELTO [Suspect]
     Active Substance: RIVAROXABAN
     Dosage: 10 MILLIGRAM, QD (TOTAL EXPECTED DURATION OF 6 WEEKS)
     Route: 048
     Dates: start: 20230213
  5. ACETAMINOPHEN [Concomitant]
     Active Substance: ACETAMINOPHEN
     Dosage: 1000 MILLIGRAM, QID
     Route: 065
     Dates: start: 20230205
  6. NEUPOGEN [Concomitant]
     Active Substance: FILGRASTIM
     Dosage: UNK  48 MU 1X/DAY  FOR 48 HR, START 10-FEB-2023
     Route: 065
  7. AMOXICILLIN\CLAVULANATE POTASSIUM [Concomitant]
     Active Substance: AMOXICILLIN\CLAVULANATE POTASSIUM
     Dosage: UNK, START 16-FEB-2023
     Route: 065
  8. PANTOPRAZOLE [Concomitant]
     Active Substance: PANTOPRAZOLE
     Dosage: 20 MILLIGRAM, QD
     Route: 065
     Dates: start: 20230205
  9. CEFEPIME [Concomitant]
     Active Substance: CEFEPIME HYDROCHLORIDE
     Dosage: UNK, START 10-FEB-2023
     Route: 065

REACTIONS (7)
  - Agranulocytosis [Recovered/Resolved]
  - Leukopenia [Unknown]
  - C-reactive protein increased [Unknown]
  - Febrile neutropenia [Recovered/Resolved]
  - Tonsillitis bacterial [Unknown]
  - Anaemia [Unknown]
  - Heavy menstrual bleeding [Unknown]

NARRATIVE: CASE EVENT DATE: 20230209
